FAERS Safety Report 5001258-0 (Version None)
Quarter: 2006Q2

REPORT INFORMATION
  Report Type: 
  Country: None (occurrence: None)
  Receive Date: 20060512
  Receipt Date: 20060411
  Transmission Date: 20061013
  Serious: Yes (Hospitalization, Other)
  Sender: FDA-Public Use
  Company Number: DE-ABBOTT-06P-062-0330394-00

PATIENT
  Sex: Male
  Weight: 77 kg

DRUGS (13)
  1. KLACID PRO [Suspect]
     Indication: ARTHRITIS
     Route: 048
     Dates: start: 20031008, end: 20031102
  2. KLACID PRO [Suspect]
     Indication: PYREXIA
  3. KLACID PRO [Suspect]
     Indication: PAIN
  4. ROXITHROMYCIN [Suspect]
     Indication: PYREXIA
     Route: 048
     Dates: start: 20031020, end: 20031028
  5. VOLTAREN [Suspect]
     Indication: ARTHRITIS
     Route: 048
     Dates: start: 20031030, end: 20031120
  6. CIALIS [Concomitant]
     Indication: ERECTILE DYSFUNCTION
     Route: 048
     Dates: start: 20030715, end: 20030915
  7. ACETYLSALICYLIC ACID SRT [Concomitant]
     Indication: DRUG USE FOR UNKNOWN INDICATION
     Route: 048
     Dates: start: 20031010, end: 20031020
  8. ACETAMINOPHEN [Concomitant]
     Indication: DRUG USE FOR UNKNOWN INDICATION
     Route: 048
     Dates: start: 20031020, end: 20031030
  9. METOPROLOL [Concomitant]
     Indication: TACHYCARDIA
     Route: 048
     Dates: start: 20031101, end: 20031231
  10. FRUBIASE SPORT FIZZY TABLETS [Concomitant]
     Indication: DRUG USE FOR UNKNOWN INDICATION
     Route: 048
     Dates: start: 20030501, end: 20040111
  11. ALMASED VITALKOST [Concomitant]
     Indication: DRUG USE FOR UNKNOWN INDICATION
     Route: 048
     Dates: start: 20030501, end: 20040111
  12. PREDNISOLONE [Concomitant]
     Indication: DRUG USE FOR UNKNOWN INDICATION
     Route: 048
     Dates: start: 20031120, end: 20040111
  13. ABTEI MEERSALZ NASENSPRAY [Concomitant]
     Indication: DRUG USE FOR UNKNOWN INDICATION
     Route: 055
     Dates: start: 19920101, end: 20040111

REACTIONS (4)
  - APLASTIC ANAEMIA [None]
  - PANCYTOPENIA [None]
  - TACHYCARDIA [None]
  - TRANSAMINASES INCREASED [None]
